FAERS Safety Report 8849469 (Version 1)
Quarter: 2012Q4

REPORT INFORMATION
  Report Type: 
  Country: IT (occurrence: IT)
  Receive Date: 20121019
  Receipt Date: 20121019
  Transmission Date: 20130627
  Serious: Yes (Hospitalization, Other)
  Sender: FDA-Public Use
  Company Number: PHHY2012IT092164

PATIENT
  Age: 64 Year
  Sex: Female

DRUGS (4)
  1. CITALOPRAM [Suspect]
     Indication: DEPRESSION
     Dates: start: 2010
  2. CITALOPRAM [Suspect]
     Dosage: 1680 mg, UNK
     Dates: start: 20120804
  3. PANTOPAN [Concomitant]
     Indication: PEPTIC ULCER
  4. BLOPRESID [Concomitant]
     Indication: HYPERTENSION

REACTIONS (4)
  - Abdominal pain upper [Unknown]
  - Arrhythmia [Unknown]
  - Convulsion [Unknown]
  - Drug abuse [Unknown]
